FAERS Safety Report 8538707-7 (Version None)
Quarter: 2012Q3

REPORT INFORMATION
  Report Type: 
  Country: None (occurrence: None)
  Receive Date: 20120726
  Receipt Date: 20120718
  Transmission Date: 20120928
  Serious: No
  Sender: FDA-Public Use
  Company Number: US-009507513-1207USA007649

PATIENT

DRUGS (3)
  1. DOXORUBICIN HYDROCHLORIDE [Concomitant]
  2. CYTOXAN [Concomitant]
  3. EMEND [Suspect]
     Indication: PROPHYLAXIS OF NAUSEA AND VOMITING
     Dosage: 150 MG, UNK
     Route: 042

REACTIONS (2)
  - URTICARIA [None]
  - PRURITUS [None]
